FAERS Safety Report 20437708 (Version 1)
Quarter: 2022Q1

REPORT INFORMATION
  Report Type: Spontaneous
  Country: PL (occurrence: PL)
  Receive Date: 20220207
  Receipt Date: 20220207
  Transmission Date: 20220423
  Serious: Yes (Death)
  Sender: FDA-Public Use
  Company Number: PL-TEVA-2022-PL-2004602

PATIENT
  Age: 87 Year
  Sex: Male

DRUGS (2)
  1. AZITHROMYCIN ANHYDROUS [Suspect]
     Active Substance: AZITHROMYCIN ANHYDROUS
     Route: 065
  2. BROMHEXINE HYDROCHLORIDE [Concomitant]
     Active Substance: BROMHEXINE HYDROCHLORIDE
     Route: 065

REACTIONS (5)
  - Feeling abnormal [Fatal]
  - C-reactive protein increased [Fatal]
  - Dyspnoea [Fatal]
  - Feeding disorder [Fatal]
  - Pneumonia [Fatal]

NARRATIVE: CASE EVENT DATE: 20211201
